FAERS Safety Report 6009977-4 (Version None)
Quarter: 2008Q4

REPORT INFORMATION
  Report Type: 
  Country: None (occurrence: None)
  Receive Date: 20081218
  Receipt Date: 20081210
  Transmission Date: 20090506
  Serious: Yes (Disabling)
  Sender: FDA-Public Use
  Company Number: US-JNJFOC-20081203587

PATIENT
  Sex: Female
  Weight: 80.74 kg

DRUGS (7)
  1. CONCERTA [Suspect]
     Route: 065
  2. CONCERTA [Suspect]
     Indication: DISTURBANCE IN ATTENTION
     Route: 065
  3. ZOLOFT [Suspect]
     Indication: ANXIETY
  4. ZOLOFT [Suspect]
     Indication: DEPRESSION
  5. WELLBUTRIN SR [Concomitant]
  6. XANAX [Concomitant]
     Indication: ANXIETY
  7. XANAX XL [Concomitant]
     Indication: ANXIETY

REACTIONS (7)
  - BLOOD CHOLESTEROL ABNORMAL [None]
  - DISABILITY [None]
  - INFECTIOUS MONONUCLEOSIS [None]
  - IRRITABILITY [None]
  - POST-TRAUMATIC STRESS DISORDER [None]
  - THYROID DISORDER [None]
  - WEIGHT DECREASED [None]
